FAERS Safety Report 5352003-0 (Version None)
Quarter: 2007Q2

REPORT INFORMATION
  Report Type: 
  Country: None (occurrence: None)
  Receive Date: 20070611
  Receipt Date: 20070601
  Transmission Date: 20071010
  Serious: Yes (Death, Hospitalization)
  Sender: FDA-Public Use
  Company Number: PHNR2005AU01321

PATIENT
  Age: 34 Year
  Sex: Male

DRUGS (4)
  1. OXYCONTIN [Concomitant]
  2. OMEPRAZOLE [Concomitant]
  3. DEXAMETHASONE 0.5MG TAB [Concomitant]
  4. SANDOSTATIN LAR [Suspect]
     Indication: NEUROENDOCRINE TUMOUR
     Dosage: 30 MG, ONCE/SINGLE
     Route: 030
     Dates: start: 20050810, end: 20050810

REACTIONS (10)
  - BLOOD GLUCOSE DECREASED [None]
  - BLOOD INSULIN INCREASED [None]
  - BRAIN DAMAGE [None]
  - BRAIN HYPOXIA [None]
  - GLASGOW COMA SCALE ABNORMAL [None]
  - HYPOGLYCAEMIC COMA [None]
  - INSULIN C-PEPTIDE INCREASED [None]
  - INTUBATION [None]
  - RESUSCITATION [None]
  - SEDATIVE THERAPY [None]
